FAERS Safety Report 26002669 (Version 1)
Quarter: 2025Q4

REPORT INFORMATION
  Report Type: Spontaneous
  Country: CN (occurrence: CN)
  Receive Date: 20251106
  Receipt Date: 20251106
  Transmission Date: 20260118
  Serious: Yes (Hospitalization)
  Sender: ACCORD
  Company Number: None

PATIENT
  Age: 39 Year
  Sex: Female

DRUGS (4)
  1. TRASTUZUMAB [Suspect]
     Active Substance: TRASTUZUMAB
     Indication: Breast cancer
     Dosage: STRENGTH: 150 MILLIGRAM, 390 MILLIGRAM, QD
     Dates: start: 20250413, end: 20250413
  2. PACLITAXEL [Suspect]
     Active Substance: PACLITAXEL
     Indication: Breast cancer
     Dosage: 400 MILLIGRAMS, QD, IV DRIP
     Dates: start: 20250413, end: 20250413
  3. LOBAPLATIN [Suspect]
     Active Substance: LOBAPLATIN
     Indication: Breast cancer
     Dosage: 50 MILLIGRAM, QD, IV DRIP
     Dates: start: 20250413, end: 20250413
  4. PERTUZUMAB [Suspect]
     Active Substance: PERTUZUMAB
     Indication: Breast cancer
     Dosage: 420 MILLIGRAM, QD
     Dates: start: 20250413, end: 20250413

REACTIONS (1)
  - Myelosuppression [Recovering/Resolving]

NARRATIVE: CASE EVENT DATE: 20250422
